FAERS Safety Report 24144760 (Version 2)
Quarter: 2024Q4

REPORT INFORMATION
  Report Type: Spontaneous
  Country: CA (occurrence: CA)
  Receive Date: 20240729
  Receipt Date: 20241029
  Transmission Date: 20250114
  Serious: Yes (Other)
  Sender: SANOFI AVENTIS
  Company Number: CA-SA-SAC20240724000749

PATIENT
  Age: 70 Year
  Sex: Male

DRUGS (4)
  1. IRBESARTAN [Suspect]
     Active Substance: IRBESARTAN
     Indication: Blood pressure increased
     Dosage: 150 MG, QD
     Route: 065
     Dates: start: 20240215, end: 20240218
  2. CANNABIS SATIVA SUBSP. INDICA TOP [Suspect]
     Active Substance: CANNABIS SATIVA SUBSP. INDICA TOP
     Indication: Pain management
     Dosage: 10-50 MG, Q4H
     Route: 048
     Dates: start: 2015
  3. CANNABIS SATIVA SUBSP. INDICA TOP [Suspect]
     Active Substance: CANNABIS SATIVA SUBSP. INDICA TOP
     Indication: Pain management
     Dosage: 1.5-3G, DAILY
     Route: 055
     Dates: start: 2015
  4. TYLENOL [Concomitant]
     Active Substance: ACETAMINOPHEN
     Indication: Pain
     Dosage: 500 MG, BID

REACTIONS (8)
  - Cardiac discomfort [Recovered/Resolved]
  - Discomfort [Recovered/Resolved]
  - Near death experience [Recovered/Resolved]
  - Nervousness [Recovered/Resolved]
  - Pain [Unknown]
  - Tension [Recovered/Resolved]
  - Fear [Recovered/Resolved]
  - Drug interaction [Recovered/Resolved]

NARRATIVE: CASE EVENT DATE: 20240217
